FAERS Safety Report 9031639 (Version 3)
Quarter: 2013Q2

REPORT INFORMATION
  Report Type: Report from Study
  Country: US (occurrence: US)
  Receive Date: 20130124
  Receipt Date: 20130509
  Transmission Date: 20140414
  Serious: Yes (Hospitalization)
  Sender: FDA-Public Use
  Company Number: US-ACTELION-A-NJ2013-78042

PATIENT
  Age: 43 Year
  Sex: Female

DRUGS (3)
  1. TRACLEER [Suspect]
     Indication: PULMONARY ARTERIAL HYPERTENSION
     Dosage: UNK
     Route: 048
     Dates: start: 200201
  2. FLOLAN [Concomitant]
     Dosage: UNK
     Route: 041
  3. SILDENAFIL [Concomitant]

REACTIONS (3)
  - Device related infection [Unknown]
  - Application site erythema [Unknown]
  - Right ventricular failure [Recovering/Resolving]
